FAERS Safety Report 20924309 (Version 1)
Quarter: 2022Q2

REPORT INFORMATION
  Report Type: Spontaneous
  Country: US (occurrence: US)
  Receive Date: 20220607
  Receipt Date: 20220607
  Transmission Date: 20220721
  Serious: Yes (Other)
  Sender: FDA-Public Use
  Company Number: US-GLAXOSMITHKLINE-US2022088401

PATIENT

DRUGS (1)
  1. ZEJULA [Suspect]
     Active Substance: NIRAPARIB
     Indication: Malignant peritoneal neoplasm
     Dosage: 200 MG, QD
     Dates: start: 20220519

REACTIONS (6)
  - Recurrent cancer [Unknown]
  - Abdominal distension [Unknown]
  - Muscle spasms [Unknown]
  - Nausea [Unknown]
  - Constipation [Unknown]
  - Product dose omission issue [Unknown]
